FAERS Safety Report 19274506 (Version 2)
Quarter: 2021Q3

REPORT INFORMATION
  Report Type: Report from Study
  Country: US (occurrence: US)
  Receive Date: 20210519
  Receipt Date: 20210816
  Transmission Date: 20211014
  Serious: Yes (Other)
  Sender: FDA-Public Use
  Company Number: US-CLOVIS ONCOLOGY-CLO-2021-000229

PATIENT
  Age: 81 Year
  Sex: Female

DRUGS (3)
  1. RUBRACA [Suspect]
     Active Substance: RUCAPARIB CAMSYLATE
     Dosage: 300 MILLIGRAM, BID
     Route: 048
     Dates: start: 20191227
  2. RUBRACA [Suspect]
     Active Substance: RUCAPARIB CAMSYLATE
     Indication: OVARIAN CANCER
     Dosage: 300 MILLIGRAM, BID
     Route: 048
     Dates: start: 20210121
  3. RUBRACA [Suspect]
     Active Substance: RUCAPARIB CAMSYLATE
     Dosage: 300 MILLIGRAM, BID
     Route: 048
     Dates: start: 20210121

REACTIONS (8)
  - Laboratory test abnormal [Unknown]
  - Throat cancer [Unknown]
  - Carbohydrate antigen 125 increased [Unknown]
  - Cystitis [Recovering/Resolving]
  - Tongue discomfort [Unknown]
  - Dysphagia [Unknown]
  - Lymphoma [Unknown]
  - Glossodynia [Unknown]

NARRATIVE: CASE EVENT DATE: 202102
